FAERS Safety Report 16860789 (Version 1)
Quarter: 2019Q3

REPORT INFORMATION
  Report Type: Spontaneous
  Country: US (occurrence: US)
  Receive Date: 20190806
  Receipt Date: 20190806
  Transmission Date: 20191005
  Serious: No
  Sender: FDA-Public Use
  Company Number: None

PATIENT
  Age: 54 Year
  Sex: Male

DRUGS (1)
  1. TEMOZOLOMIDE 180MG SANDOZ INC [Suspect]
     Active Substance: TEMOZOLOMIDE
     Indication: BRAIN NEOPLASM MALIGNANT
     Dosage: 180MG ONCE DAILY FOR 32 DAYS ORAL
     Route: 048
     Dates: start: 20190704

REACTIONS (1)
  - Seizure [None]

NARRATIVE: CASE EVENT DATE: 20190715
